FAERS Safety Report 7217280-X (Version None)
Quarter: 2011Q1

REPORT INFORMATION
  Report Type: 
  Country: None (occurrence: None)
  Receive Date: 20110110
  Receipt Date: 20101220
  Transmission Date: 20110831
  Serious: No
  Sender: FDA-Public Use
  Company Number: US-B.I. PHARMACEUTICALS,INC./RIDGEFIELD-2010-BP-15161BP

PATIENT
  Age: 78 Year
  Sex: Male

DRUGS (8)
  1. COREG CR [Concomitant]
     Indication: CARDIAC DISORDER
  2. WATER PILL [Concomitant]
     Indication: CARDIAC DISORDER
  3. ULORIC [Concomitant]
     Indication: GOUT
  4. ASPIRIN [Concomitant]
     Indication: CARDIAC DISORDER
  5. NEXIUM [Concomitant]
     Indication: GASTRIC DISORDER
  6. PRADAXA [Suspect]
     Indication: ATRIAL FIBRILLATION
     Dosage: 300 MG
     Route: 048
     Dates: start: 20101208
  7. DIGOXIN [Concomitant]
     Indication: CARDIAC DISORDER
  8. TERAZOSIN HCL [Concomitant]
     Indication: BENIGN PROSTATIC HYPERPLASIA

REACTIONS (2)
  - PAIN IN EXTREMITY [None]
  - ARTHRALGIA [None]
